FAERS Safety Report 8008828-6 (Version None)
Quarter: 2011Q4

REPORT INFORMATION
  Report Type: 
  Country: None (occurrence: None)
  Receive Date: 20111227
  Receipt Date: 20111221
  Transmission Date: 20120403
  Serious: Yes (Other)
  Sender: FDA-Public Use
  Company Number: PHEH2011US011708

PATIENT
  Age: 77 Year
  Sex: Female

DRUGS (10)
  1. CALCIUM CARBONATE [Concomitant]
     Dosage: 600 UKN, QD
  2. AGGRENOX [Concomitant]
     Dosage: 1 DF(200/25)(DAILY), UNK
  3. NIASPAN [Concomitant]
     Dosage: 500 MG, QD
  4. LEVOTHYROXINE SODIUM [Concomitant]
     Dosage: 100 UG, QD
  5. RECLAST [Suspect]
     Indication: OSTEOPOROSIS
     Dosage: UNK UKN, UNK
     Route: 042
  6. NORVASC [Concomitant]
     Dosage: 5 MG, UNK
  7. PROTONIX [Concomitant]
     Dosage: 40 MG, QD
  8. PRAVASTATIN [Concomitant]
     Dosage: 40 MG, QD
  9. PREDNISONE TAB [Concomitant]
     Dosage: 60 MG, UNK
  10. BICANORM (SODIUM BICARBONATE) [Concomitant]
     Dosage: 650 MG, UNK

REACTIONS (19)
  - MONOCLONAL GAMMOPATHY [None]
  - DYSLIPIDAEMIA [None]
  - BLOOD TRIGLYCERIDES INCREASED [None]
  - HYPOTHYROIDISM [None]
  - LEUKOCYTOSIS [None]
  - HYPOKALAEMIA [None]
  - OESOPHAGEAL MASS [None]
  - FATIGUE [None]
  - TUBULOINTERSTITIAL NEPHRITIS [None]
  - BLOOD CREATININE DECREASED [None]
  - BLOOD UREA INCREASED [None]
  - ACTIVATED PARTIAL THROMBOPLASTIN TIME SHORTENED [None]
  - ASTHENIA [None]
  - MUSCULAR WEAKNESS [None]
  - RENAL FAILURE ACUTE [None]
  - GLOMERULAR FILTRATION RATE DECREASED [None]
  - VAGINITIS BACTERIAL [None]
  - ANAEMIA [None]
  - HYPERTENSION [None]
